FAERS Safety Report 24989474 (Version 1)
Quarter: 2025Q1

REPORT INFORMATION
  Report Type: Report from Study
  Country: SK (occurrence: SK)
  Receive Date: 20250220
  Receipt Date: 20250220
  Transmission Date: 20250408
  Serious: Yes (Death)
  Sender: TAKEDA
  Company Number: SK-TAKEDA-2025TUS017620

PATIENT
  Sex: Male
  Weight: 56 kg

DRUGS (1)
  1. HUMAN IMMUNOGLOBULIN G\HYALURONIDASE RECOMBINANT HUMAN [Suspect]
     Active Substance: HUMAN IMMUNOGLOBULIN G\HYALURONIDASE (HUMAN RECOMBINANT)
     Indication: Product used for unknown indication
     Dosage: UNK UNK, MONTHLY
     Dates: start: 20210506, end: 202410

REACTIONS (1)
  - Oncologic complication [Fatal]

NARRATIVE: CASE EVENT DATE: 20241001
